FAERS Safety Report 13770391 (Version 2)
Quarter: 2017Q3

REPORT INFORMATION
  Report Type: Spontaneous
  Country: CH (occurrence: CH)
  Receive Date: 20170719
  Receipt Date: 20170728
  Transmission Date: 20171127
  Serious: Yes (Life-Threatening, Hospitalization)
  Sender: FDA-Public Use
  Company Number: CH-009507513-1707CHE005644

PATIENT
  Age: 81 Year
  Sex: Female

DRUGS (6)
  1. FRAGMIN [Concomitant]
     Active Substance: DALTEPARIN SODIUM
     Indication: TROUSSEAU^S SYNDROME
     Dosage: 10000 INTERNATIONAL UNIT
     Route: 058
  2. EUTHYROX [Concomitant]
     Active Substance: LEVOTHYROXINE SODIUM
     Dosage: 50 MICROGRAM, QD
     Route: 048
  3. DAFALGAN [Concomitant]
     Active Substance: ACETAMINOPHEN
     Dosage: 1 G, TID
     Route: 048
  4. DUROGESIC [Concomitant]
     Active Substance: FENTANYL
     Dosage: 50 MICROGRAM, UNK
     Route: 062
  5. IMOVANE [Concomitant]
     Active Substance: ZOPICLONE
     Route: 048
  6. PEMBROLIZUMAB. [Suspect]
     Active Substance: PEMBROLIZUMAB
     Indication: LUNG NEOPLASM MALIGNANT
     Route: 041
     Dates: start: 20170624, end: 20170624

REACTIONS (5)
  - Pleural effusion [Recovered/Resolved]
  - Acute respiratory failure [Recovering/Resolving]
  - Nausea [Recovered/Resolved]
  - Asthenia [Recovering/Resolving]
  - Cytokine release syndrome [Recovered/Resolved]

NARRATIVE: CASE EVENT DATE: 20170624
